FAERS Safety Report 14291634 (Version 1)
Quarter: 2017Q4

REPORT INFORMATION
  Report Type: Spontaneous
  Country: US (occurrence: US)
  Receive Date: 20171215
  Receipt Date: 20171215
  Transmission Date: 20180321
  Serious: Yes (Other)
  Sender: FDA-Public Use
  Company Number: US-NOVOPROD-538493

PATIENT
  Age: 63 Year
  Sex: Male

DRUGS (1)
  1. LEVEMIR [Suspect]
     Active Substance: INSULIN DETEMIR
     Indication: TYPE 2 DIABETES MELLITUS
     Dosage: 46 U, QD
     Route: 058

REACTIONS (4)
  - Device issue [Recovered/Resolved]
  - Liquid product physical issue [Recovered/Resolved]
  - Blood glucose decreased [Recovered/Resolved]
  - Product contamination [Recovered/Resolved]

NARRATIVE: CASE EVENT DATE: 20170323
